FAERS Safety Report 20835696 (Version 2)
Quarter: 2025Q1

REPORT INFORMATION
  Report Type: Spontaneous
  Country: US (occurrence: US)
  Receive Date: 20220516
  Receipt Date: 20250103
  Transmission Date: 20250409
  Serious: No
  Sender: PFIZER
  Company Number: US-PFIZER INC-202101883062

PATIENT
  Age: 77 Year
  Sex: Female

DRUGS (9)
  1. GABAPENTIN [Suspect]
     Active Substance: GABAPENTIN
  2. LYRICA [Suspect]
     Active Substance: PREGABALIN
  3. FENTANYL CITRATE [Suspect]
     Active Substance: FENTANYL CITRATE
  4. METHYLPREDNISOLONE [Suspect]
     Active Substance: METHYLPREDNISOLONE
  5. PREDNISONE [Suspect]
     Active Substance: PREDNISONE
  6. DARVON [Suspect]
     Active Substance: PROPOXYPHENE HYDROCHLORIDE
  7. DIETARY SUPPLEMENT [Suspect]
     Active Substance: DIETARY SUPPLEMENT
  8. PROPOXYPHENE [Suspect]
     Active Substance: PROPOXYPHENE
  9. GUAIFENESIN [Suspect]
     Active Substance: GUAIFENESIN

REACTIONS (1)
  - Drug hypersensitivity [Unknown]
